FAERS Safety Report 14434280 (Version 1)
Quarter: 2018Q1

REPORT INFORMATION
  Report Type: Spontaneous
  Country: NL (occurrence: NL)
  Receive Date: 20180124
  Receipt Date: 20180124
  Transmission Date: 20180509
  Serious: Yes (Hospitalization)
  Sender: FDA-Public Use
  Company Number: NL-TEVA-2018-NL-848286

PATIENT
  Age: 73 Year
  Sex: Female

DRUGS (7)
  1. HYDROCHLOORTHIAZIDE TABLET, 12,5 MG (MILLIGRAM) [Suspect]
     Active Substance: HYDROCHLOROTHIAZIDE
     Indication: HYPERTENSION
     Dosage: 1 DAILY 1 TABLET
     Route: 065
     Dates: end: 201710
  2. HYDRALAZINE TABLET, 10 MG (MILLIGRAM) [Suspect]
     Active Substance: HYDRALAZINE HYDROCHLORIDE
     Indication: HYPERTENSION
     Dosage: 3 DAILY 1 TABLET
     Route: 065
     Dates: end: 201710
  3. METOPROLOL TABLET MET GEREGULEERDE AFGIFTE, 100 MG (MILLIGRAM) [Suspect]
     Active Substance: METOPROLOL
     Indication: ARRHYTHMIA
     Dosage: 1 DAILY 1 TABLET
     Route: 065
  4. CHEMO (HYDREA 500) [Concomitant]
  5. OMEPRAZOL 40 MG [Concomitant]
  6. VALSARTAN/HYDROCHLOORTHIAZIDE OMHULDE TABLET, 160/12,5 MG (MILLIGRAM) [Suspect]
     Active Substance: HYDROCHLOROTHIAZIDE\VALSARTAN
     Indication: HYPERTENSION
     Dosage: 1 DAILY 1 TABLET
     Route: 065
     Dates: end: 201710
  7. SPIRONOLACTON TABLET, 12,5 MG (MILLIGRAM) [Suspect]
     Active Substance: SPIRONOLACTONE
     Indication: HYPERTENSION
     Dosage: 1 DAILY 1 TABLET
     Route: 065
     Dates: end: 201710

REACTIONS (2)
  - Toe amputation [Recovered/Resolved with Sequelae]
  - Chillblains [Recovered/Resolved with Sequelae]

NARRATIVE: CASE EVENT DATE: 20160811
